FAERS Safety Report 11807443 (Version 2)
Quarter: 2015Q4

REPORT INFORMATION
  Report Type: Report from Study
  Country: FR (occurrence: FR)
  Receive Date: 20151207
  Receipt Date: 20151219
  Transmission Date: 20160305
  Serious: Yes (Death, Other)
  Sender: FDA-Public Use
  Company Number: FR-BRISTOL-MYERS SQUIBB COMPANY-BMS-2015-084771

PATIENT
  Sex: Male
  Weight: 95 kg

DRUGS (1)
  1. NIVOLUMAB [Suspect]
     Active Substance: NIVOLUMAB
     Indication: NON-SMALL CELL LUNG CANCER
     Dosage: 177 MG, TOTAL
     Route: 065
     Dates: start: 20150903

REACTIONS (1)
  - Malignant neoplasm progression [Fatal]
